FAERS Safety Report 9584440 (Version 2)
Quarter: 2013Q4

REPORT INFORMATION
  Report Type: Spontaneous
  Country: US (occurrence: US)
  Receive Date: 20131002
  Receipt Date: 20131002
  Transmission Date: 20140711
  Serious: No
  Sender: FDA-Public Use
  Company Number: US-AMGEN-USASP2013051178

PATIENT
  Age: 63 Year
  Sex: Female

DRUGS (8)
  1. ENBREL [Suspect]
     Indication: RHEUMATOID ARTHRITIS
     Dosage: 50 MG, QWK
     Route: 058
     Dates: start: 20130509
  2. HUMIRA [Concomitant]
     Dosage: 6 OR 7 DOSES
  3. REMICADE [Concomitant]
     Dosage: UNK
  4. MTX                                /00113801/ [Concomitant]
     Dosage: 7.5 MG, QWK
  5. EVISTA [Concomitant]
     Dosage: UNK
  6. MEDROL                             /00049601/ [Concomitant]
     Dosage: UNK
  7. ASACOL [Concomitant]
     Dosage: UNK
  8. ASA [Concomitant]
     Dosage: UNK

REACTIONS (7)
  - Local swelling [Not Recovered/Not Resolved]
  - Rash [Recovered/Resolved]
  - Injection site reaction [Not Recovered/Not Resolved]
  - Injection site erythema [Not Recovered/Not Resolved]
  - Injection site swelling [Not Recovered/Not Resolved]
  - Anaemia [Not Recovered/Not Resolved]
  - Injection site pain [Not Recovered/Not Resolved]
